FAERS Safety Report 24697020 (Version 1)
Quarter: 2024Q4

REPORT INFORMATION
  Report Type: Spontaneous
  Country: CN (occurrence: CN)
  Receive Date: 20241204
  Receipt Date: 20241204
  Transmission Date: 20250115
  Serious: Yes (Other)
  Sender: PFIZER
  Company Number: CN-PFIZER INC-PV202400155817

PATIENT
  Age: 49 Year
  Sex: Female

DRUGS (2)
  1. AXITINIB [Suspect]
     Active Substance: AXITINIB
     Indication: Renal cancer
     Dosage: 5 MG, BID (TWICE A DAY)
     Route: 048
     Dates: start: 20240910, end: 20240914
  2. AXITINIB [Suspect]
     Active Substance: AXITINIB
     Indication: Targeted cancer therapy

REACTIONS (4)
  - Diarrhoea [Recovering/Resolving]
  - Discomfort [Recovering/Resolving]
  - Myelosuppression [Recovering/Resolving]
  - Anaemia [Recovering/Resolving]

NARRATIVE: CASE EVENT DATE: 20240910
